FAERS Safety Report 7779846-8 (Version None)
Quarter: 2011Q3

REPORT INFORMATION
  Report Type: 
  Country: None (occurrence: None)
  Receive Date: 20110927
  Receipt Date: 20110916
  Transmission Date: 20111222
  Serious: Yes (Hospitalization)
  Sender: FDA-Public Use
  Company Number: JP-JNJFOC-20110908207

PATIENT
  Age: 35 Year
  Sex: Male

DRUGS (2)
  1. REMICADE [Suspect]
     Dosage: FIRST DOSE
     Route: 042
     Dates: start: 20100501
  2. REMICADE [Suspect]
     Indication: CROHN'S DISEASE
     Dosage: TENTH DOSE
     Route: 042
     Dates: start: 20110730

REACTIONS (1)
  - MENINGITIS LISTERIA [None]
